FAERS Safety Report 16184516 (Version 1)
Quarter: 2019Q2

REPORT INFORMATION
  Report Type: Spontaneous
  Country: US (occurrence: US)
  Receive Date: 20190411
  Receipt Date: 20190411
  Transmission Date: 20190711
  Serious: Yes (Other)
  Sender: FDA-Public Use
  Company Number: US-MYLANLABS-2019M1034448

PATIENT
  Sex: Female

DRUGS (13)
  1. PREDNISONE. [Suspect]
     Active Substance: PREDNISONE
     Indication: PULMONARY SARCOIDOSIS
     Dosage: 15 MILLIGRAM, QD
     Route: 065
  2. HYDROXYCHLOROQUINE [Suspect]
     Active Substance: HYDROXYCHLOROQUINE
     Indication: SINUS DISORDER
  3. ADALIMUMAB [Suspect]
     Active Substance: ADALIMUMAB
     Indication: CUTANEOUS SARCOIDOSIS
  4. METHOTREXATE. [Suspect]
     Active Substance: METHOTREXATE
     Indication: PULMONARY SARCOIDOSIS
     Route: 065
  5. METHOTREXATE. [Suspect]
     Active Substance: METHOTREXATE
     Indication: CUTANEOUS SARCOIDOSIS
  6. ADALIMUMAB [Suspect]
     Active Substance: ADALIMUMAB
     Indication: PULMONARY SARCOIDOSIS
     Route: 065
  7. MINOCYCLINE [Suspect]
     Active Substance: MINOCYCLINE\MINOCYCLINE HYDROCHLORIDE
     Indication: PULMONARY SARCOIDOSIS
     Route: 065
  8. HYDROXYCHLOROQUINE [Suspect]
     Active Substance: HYDROXYCHLOROQUINE
     Indication: CUTANEOUS SARCOIDOSIS
  9. MINOCYCLINE [Suspect]
     Active Substance: MINOCYCLINE\MINOCYCLINE HYDROCHLORIDE
     Indication: CUTANEOUS SARCOIDOSIS
  10. HYDROXYCHLOROQUINE [Suspect]
     Active Substance: HYDROXYCHLOROQUINE
     Indication: PULMONARY SARCOIDOSIS
     Route: 065
  11. METHOTREXATE. [Suspect]
     Active Substance: METHOTREXATE
     Indication: SINUS DISORDER
  12. MINOCYCLINE [Suspect]
     Active Substance: MINOCYCLINE\MINOCYCLINE HYDROCHLORIDE
     Indication: SINUS DISORDER
  13. ADALIMUMAB [Suspect]
     Active Substance: ADALIMUMAB
     Indication: SINUS DISORDER

REACTIONS (4)
  - Drug ineffective [Unknown]
  - Osteopenia [Unknown]
  - Diabetes mellitus [Unknown]
  - Off label use [Unknown]
